FAERS Safety Report 9458647 (Version 1)
Quarter: 2013Q3

REPORT INFORMATION
  Report Type: Report from Study
  Country: US (occurrence: US)
  Receive Date: 20130814
  Receipt Date: 20130814
  Transmission Date: 20140515
  Serious: Yes (Hospitalization, Other)
  Sender: FDA-Public Use
  Company Number: US-JNJFOC-20130510454

PATIENT
  Age: 74 Year
  Sex: Female

DRUGS (2)
  1. REMICADE [Suspect]
     Indication: RHEUMATOID ARTHRITIS
     Route: 042
  2. PAIN MEDICATION [Suspect]
     Indication: PAIN
     Route: 065

REACTIONS (3)
  - Knee operation [Unknown]
  - Spinal fracture [Recovered/Resolved]
  - Malaise [Not Recovered/Not Resolved]
